FAERS Safety Report 4874099-2 (Version None)
Quarter: 2005Q4

REPORT INFORMATION
  Report Type: 
  Country: None (occurrence: None)
  Receive Date: 20051201
  Receipt Date: 20050808
  Transmission Date: 20060501
  Serious: No
  Sender: FDA-Public Use
  Company Number: 2005PV000916

PATIENT
  Age: 53 Year
  Sex: Female
  Weight: 113.3993 kg

DRUGS (17)
  1. BYETTA [Suspect]
     Indication: DIABETES MELLITUS NON-INSULIN-DEPENDENT
     Dosage: SEE IMAGE
     Route: 058
     Dates: start: 20050601, end: 20050701
  2. BYETTA [Suspect]
     Indication: DIABETES MELLITUS NON-INSULIN-DEPENDENT
     Dosage: SEE IMAGE
     Route: 058
     Dates: start: 20050701
  3. METFORMIN HCL [Concomitant]
  4. ACTOS ^LILLY^ [Concomitant]
  5. GLYBURIDE [Concomitant]
  6. VIVELLE-DOT [Concomitant]
  7. LIPITOR [Concomitant]
  8. THYROLAR [Concomitant]
  9. SOMA [Concomitant]
  10. ASPIRIN [Concomitant]
  11. PRILOSEC [Concomitant]
  12. EFFEXOR XR [Concomitant]
  13. PERCOCET [Concomitant]
  14. VICODIN [Concomitant]
  15. AMBIEN [Concomitant]
  16. MECLIZINE [Concomitant]
  17. QUININE SULFATE [Concomitant]

REACTIONS (7)
  - ANOREXIA [None]
  - DECREASED APPETITE [None]
  - DRUG INEFFECTIVE [None]
  - MUSCLE SPASMS [None]
  - NAUSEA [None]
  - VOMITING [None]
  - WEIGHT DECREASED [None]
